FAERS Safety Report 23973262 (Version 5)
Quarter: 2025Q2

REPORT INFORMATION
  Report Type: Report from Study
  Country: US (occurrence: US)
  Receive Date: 20240613
  Receipt Date: 20250502
  Transmission Date: 20250717
  Serious: Yes (Other)
  Sender: TEVA
  Company Number: US-TEVA-VS-3205694

PATIENT
  Age: 20 Year
  Sex: Female

DRUGS (1)
  1. CLARAVIS [Suspect]
     Active Substance: ISOTRETINOIN
     Indication: Product used for unknown indication
     Route: 065
     Dates: start: 20240302, end: 20240514

REACTIONS (4)
  - Unintended pregnancy [Unknown]
  - Malaise [Recovered/Resolved]
  - Live birth [Unknown]
  - Influenza [Recovered/Resolved]

NARRATIVE: CASE EVENT DATE: 20240419
